FAERS Safety Report 9539469 (Version 1)
Quarter: 2013Q2

REPORT INFORMATION
  Report Type: Spontaneous
  Country: US (occurrence: None)
  Receive Date: 20130521
  Receipt Date: 20130521
  Transmission Date: 20140414
  Serious: No
  Sender: FDA-Public Use
  Company Number: 1000043720

PATIENT
  Sex: Female

DRUGS (1)
  1. TUDORZA PRESSAIR [Suspect]
     Dosage: RESPIRATORY (INHALATION)
     Route: 055
     Dates: start: 201303

REACTIONS (1)
  - Abdominal discomfort [None]
